FAERS Safety Report 7337358-X (Version None)
Quarter: 2011Q1

REPORT INFORMATION
  Report Type: 
  Country: None (occurrence: None)
  Receive Date: 20110224
  Receipt Date: 20110210
  Transmission Date: 20110831
  Serious: Yes (Other)
  Sender: FDA-Public Use
  Company Number: US-1184988

PATIENT
  Age: 79 Year
  Sex: Female

DRUGS (1)
  1. AZOPT [Suspect]
     Dosage: (1 GTT TID OPHTHALMIC)
     Route: 047

REACTIONS (1)
  - BRADYCARDIA [None]
